FAERS Safety Report 9113108 (Version 1)
Quarter: 2013Q1

REPORT INFORMATION
  Report Type: Spontaneous
  Country: ES (occurrence: ES)
  Receive Date: 20130211
  Receipt Date: 20130211
  Transmission Date: 20140127
  Serious: Yes (Hospitalization)
  Sender: FDA-Public Use
  Company Number: PHHY2013ES011854

PATIENT
  Age: 62 Year
  Sex: Female

DRUGS (6)
  1. RASILEZ [Suspect]
     Indication: HYPERTENSION
     Dosage: 1 DF, DAILY
     Route: 048
     Dates: start: 201112, end: 20120620
  2. ESOMEPRAZOLE [Suspect]
     Indication: PROPHYLAXIS
     Dosage: UNK UKN, UNK
     Route: 048
     Dates: start: 20120510, end: 20120620
  3. MEBEVERINE [Suspect]
     Indication: IRRITABLE BOWEL SYNDROME
     Dosage: 270 MG, UNK
     Route: 048
     Dates: start: 20120510, end: 20120620
  4. ACETYLSALICYLIC ACID [Suspect]
     Dosage: 100 MG, UNK
     Route: 048
     Dates: start: 2006
  5. PREGABALIN [Suspect]
     Indication: FIBROMYALGIA
     Dosage: 2 DF, DAILY
     Route: 048
     Dates: start: 2008, end: 20120620
  6. DULOXETINE [Suspect]
     Indication: DEPRESSION
     Dosage: 1 DF, DAILY
     Route: 048
     Dates: start: 20120620

REACTIONS (3)
  - Upper gastrointestinal haemorrhage [Recovered/Resolved]
  - Hiatus hernia [None]
  - Gastric polyps [None]
